FAERS Safety Report 11143783 (Version 2)
Quarter: 2015Q2

REPORT INFORMATION
  Report Type: Spontaneous
  Country: JP (occurrence: JP)
  Receive Date: 20150528
  Receipt Date: 20150528
  Transmission Date: 20150821
  Serious: Yes (Other)
  Sender: FDA-Public Use
  Company Number: JP-ALKEM-001022

PATIENT
  Age: 61 Year
  Sex: Female

DRUGS (5)
  1. MYCOPHENOLIC ACID. [Interacting]
     Active Substance: MYCOPHENOLIC ACID
     Indication: LIVER TRANSPLANT
  2. TACROLIMUS. [Suspect]
     Active Substance: TACROLIMUS
     Indication: LIVER TRANSPLANT
  3. SIMEPREVIR [Suspect]
     Active Substance: SIMEPREVIR
     Indication: HEPATITIS C
  4. RIBAVIRIN. [Interacting]
     Active Substance: RIBAVIRIN
     Indication: HEPATITIS C
     Dosage: DOSE WAS REDUCED TO 400 MG/DAY AND THEN WITHDRAWN
  5. PEGINTERFERON ALFA-2A [Suspect]
     Active Substance: PEGINTERFERON ALFA-2A
     Indication: HEPATITIS C
     Dosage: ALSO RECEIVED AT 90 MG/WEEK AND 45 MG/WEEK

REACTIONS (2)
  - Haemolytic anaemia [Unknown]
  - Drug interaction [Unknown]
